FAERS Safety Report 22050925 (Version 1)
Quarter: 2023Q1

REPORT INFORMATION
  Report Type: Spontaneous
  Country: US (occurrence: US)
  Receive Date: 20230301
  Receipt Date: 20230301
  Transmission Date: 20230418
  Serious: No
  Sender: FDA-Public Use
  Company Number: US-BRISTOL-MYERS SQUIBB COMPANY-2023-030140

PATIENT
  Age: 42 Year
  Sex: Male

DRUGS (2)
  1. ZEPOSIA [Interacting]
     Active Substance: OZANIMOD HYDROCHLORIDE
     Indication: Multiple sclerosis
     Route: 048
  2. NORTRIPTYLINE [Interacting]
     Active Substance: NORTRIPTYLINE
     Indication: Product used for unknown indication

REACTIONS (2)
  - Blood pressure increased [Unknown]
  - Drug interaction [Unknown]
